FAERS Safety Report 7876526-5 (Version None)
Quarter: 2011Q4

REPORT INFORMATION
  Report Type: 
  Country: None (occurrence: None)
  Receive Date: 20111031
  Receipt Date: 20111022
  Transmission Date: 20120403
  Serious: Yes (Other)
  Sender: FDA-Public Use
  Company Number: US-US-EMD SERONO, INC.-7091590

PATIENT
  Sex: Female
  Weight: 100 kg

DRUGS (1)
  1. REBIF [Suspect]
     Indication: MULTIPLE SCLEROSIS
     Route: 058
     Dates: start: 20070717

REACTIONS (5)
  - DIABETES MELLITUS [None]
  - DRY MOUTH [None]
  - ANXIETY [None]
  - INFLUENZA [None]
  - BONE PAIN [None]
